FAERS Safety Report 6633681-2 (Version None)
Quarter: 2010Q1

REPORT INFORMATION
  Report Type: 
  Country: None (occurrence: None)
  Receive Date: 20100314
  Receipt Date: 20100303
  Transmission Date: 20100710
  Serious: Yes (Hospitalization)
  Sender: FDA-Public Use
  Company Number: US-JNJFOC-20100302365

PATIENT
  Sex: Female
  Weight: 130.2 kg

DRUGS (15)
  1. INFLIXIMAB [Suspect]
     Indication: CROHN'S DISEASE
     Route: 042
  2. IMURAN [Concomitant]
     Indication: CROHN'S DISEASE
  3. PREDNISONE [Concomitant]
     Indication: CROHN'S DISEASE
  4. ORTHO EVRA [Concomitant]
     Route: 062
  5. PREVACID [Concomitant]
  6. TOPIRAMATE [Concomitant]
  7. VITAMIN D [Concomitant]
  8. EPINEPHRINE [Concomitant]
  9. TRAZODONE HYDROCHLORIDE [Concomitant]
  10. VANCOMYCIN [Concomitant]
  11. UNASYN [Concomitant]
  12. CLINDAMYCIN [Concomitant]
  13. MORPHINE SULFATE [Concomitant]
  14. MIRALAX [Concomitant]
  15. TYLENOL-500 [Concomitant]

REACTIONS (1)
  - CROHN'S DISEASE [None]
